FAERS Safety Report 9913103 (Version 1)
Quarter: 2014Q1

REPORT INFORMATION
  Report Type: Spontaneous
  Country: CA (occurrence: None)
  Receive Date: 20140212
  Receipt Date: 20140212
  Transmission Date: 20141002
  Serious: Yes (Other)
  Sender: FDA-Public Use
  Company Number: 2014021439

PATIENT
  Age: 56 Year
  Sex: Male

DRUGS (7)
  1. FRAGMIN [Suspect]
     Route: 058
  2. TECTA (PANTOPRAZOLE MAGNESIUM) [Concomitant]
  3. FENTANYL PATCH (FENTANYL) [Concomitant]
  4. COTAZYM (PANCREATIN) [Concomitant]
  5. METOPROLOL [Concomitant]
  6. GABAPENTIN [Concomitant]
  7. METOCLOPRAMIDE [Concomitant]

REACTIONS (3)
  - Malignant neoplasm progression [None]
  - Weight decreased [None]
  - Pancreatic carcinoma [None]
